FAERS Safety Report 9890285 (Version 3)
Quarter: 2014Q3

REPORT INFORMATION
  Report Type: Spontaneous
  Country: US (occurrence: US)
  Receive Date: 20140212
  Receipt Date: 20140718
  Transmission Date: 20150326
  Serious: Yes (Other)
  Sender: FDA-Public Use
  Company Number: US-BRISTOL-MYERS SQUIBB COMPANY-20132197

PATIENT
  Sex: Male

DRUGS (1)
  1. ABILIFY [Suspect]
     Active Substance: ARIPIPRAZOLE
     Dosage: THERAPY UNTIL 2013
     Dates: start: 2002

REACTIONS (12)
  - Neuroleptic malignant syndrome [Unknown]
  - Hand fracture [Unknown]
  - Dizziness [Unknown]
  - Dyspnoea [Unknown]
  - Emotional disorder [Unknown]
  - Cerebrovascular accident [Unknown]
  - Fall [Unknown]
  - Nausea [Unknown]
  - Convulsion [Not Recovered/Not Resolved]
  - Headache [Unknown]
  - White blood cell count decreased [Unknown]
  - Incontinence [Unknown]

NARRATIVE: CASE EVENT DATE: 2011
